FAERS Safety Report 21861122 (Version 3)
Quarter: 2023Q1

REPORT INFORMATION
  Report Type: Spontaneous
  Country: BR (occurrence: BR)
  Receive Date: 20230113
  Receipt Date: 20230204
  Transmission Date: 20230417
  Serious: Yes (Other)
  Sender: FDA-Public Use
  Company Number: BR-BAXTER-2023BAX010408

PATIENT
  Age: 53 Year
  Sex: Female

DRUGS (2)
  1. IRON [Suspect]
     Active Substance: IRON
     Indication: Mineral supplementation
     Dosage: 2 AMPOULES DILUTED IN 200 ML OF 0.9% SALINE SOLUTION, ONCE A WEEK FOR 3 WEEKS
     Route: 042
     Dates: start: 20221226, end: 20221226
  2. SODIUM CHLORIDE [Suspect]
     Active Substance: SODIUM CHLORIDE
     Indication: Medication dilution
     Dosage: 200 ML, ONCE A WEEK FOR 3 WEEKS
     Route: 042
     Dates: start: 20221226, end: 20221226

REACTIONS (2)
  - Hyperaemia [Recovered/Resolved]
  - Pruritus [Recovered/Resolved]

NARRATIVE: CASE EVENT DATE: 20221226
